FAERS Safety Report 4358363-1 (Version None)
Quarter: 2004Q2

REPORT INFORMATION
  Report Type: 
  Country: None (occurrence: None)
  Receive Date: 20040512
  Receipt Date: 20040512
  Transmission Date: 20050107
  Serious: Yes (Life-Threatening)
  Sender: FDA-Public Use
  Company Number: None

PATIENT
  Age: 36 Year
  Sex: Male

DRUGS (1)
  1. PRILOSEC OTC [Suspect]
     Indication: GASTROOESOPHAGEAL REFLUX DISEASE
     Dosage: 20 MG PO DAILY
     Route: 048
     Dates: start: 20040505

REACTIONS (4)
  - DYSPNOEA [None]
  - EYE REDNESS [None]
  - FLUSHING [None]
  - PRURITUS [None]
